FAERS Safety Report 6144681-3 (Version None)
Quarter: 2009Q2

REPORT INFORMATION
  Report Type: 
  Country: None (occurrence: None)
  Receive Date: 20090406
  Receipt Date: 20090402
  Transmission Date: 20091009
  Serious: Yes (Other)
  Sender: FDA-Public Use
  Company Number: B0563979A

PATIENT
  Sex: Male

DRUGS (4)
  1. RELENZA [Suspect]
     Indication: INFLUENZA
     Dosage: 10MG TWICE PER DAY
     Route: 055
     Dates: start: 20090302
  2. ASVERIN [Concomitant]
     Indication: ANTITUSSIVE THERAPY
     Dosage: .9G PER DAY
     Route: 048
     Dates: start: 20090302
  3. MUCODYNE [Concomitant]
     Indication: ANTITUSSIVE THERAPY
     Dosage: .9G PER DAY
     Route: 048
     Dates: start: 20090302
  4. CALONAL [Concomitant]
     Indication: ANTIPYRESIS
     Route: 048
     Dates: start: 20090302

REACTIONS (3)
  - ABNORMAL BEHAVIOUR [None]
  - DELIRIUM [None]
  - TREMOR [None]
